FAERS Safety Report 10461548 (Version 1)
Quarter: 2014Q3

REPORT INFORMATION
  Report Type: Spontaneous
  Country: US (occurrence: None)
  Receive Date: 20140917
  Receipt Date: 20140917
  Transmission Date: 20150326
  Serious: Yes (Hospitalization)
  Sender: FDA-Public Use
  Company Number: None

PATIENT
  Age: 71 Year
  Sex: Male
  Weight: 89.5 kg

DRUGS (3)
  1. DEXAMETHASONE. [Suspect]
     Active Substance: DEXAMETHASONE
     Dates: start: 20140822
  2. VELCADE [Suspect]
     Active Substance: BORTEZOMIB
     Dates: start: 20140821
  3. LENALIDOMIDE [Suspect]
     Active Substance: LENALIDOMIDE
     Dates: start: 20140824

REACTIONS (13)
  - Pulmonary mass [None]
  - Pleural effusion [None]
  - Bile duct cancer [None]
  - Hepatic lesion [None]
  - Second primary malignancy [None]
  - Dyspnoea [None]
  - Cholangiocarcinoma [None]
  - Metastases to liver [None]
  - Gait disturbance [None]
  - Lung adenocarcinoma [None]
  - Muscular weakness [None]
  - Pancreatic carcinoma [None]
  - Refusal of treatment by patient [None]

NARRATIVE: CASE EVENT DATE: 20140902
